FAERS Safety Report 7633798-X (Version None)
Quarter: 2011Q3

REPORT INFORMATION
  Report Type: 
  Country: None (occurrence: None)
  Receive Date: 20110725
  Receipt Date: 20110711
  Transmission Date: 20111222
  Serious: Yes (Other)
  Sender: FDA-Public Use
  Company Number: US-MERCK-1107USA02109

PATIENT
  Sex: Female

DRUGS (1)
  1. CRIXIVAN [Suspect]
     Indication: HIV INFECTION
     Route: 048

REACTIONS (2)
  - HEPATOBILIARY DISEASE [None]
  - MATERNAL EXPOSURE DURING PREGNANCY [None]
